FAERS Safety Report 13335333 (Version 1)
Quarter: 2017Q1

REPORT INFORMATION
  Report Type: Spontaneous
  Country: US (occurrence: US)
  Receive Date: 20170314
  Receipt Date: 20170314
  Transmission Date: 20170428
  Serious: No
  Sender: FDA-Public Use
  Company Number: US-GALDERMA-US16005607

PATIENT
  Age: 48 Year
  Sex: Female

DRUGS (4)
  1. TRI-LUMA [Suspect]
     Active Substance: FLUOCINOLONE ACETONIDE\HYDROQUINONE\TRETINOIN
     Indication: CHLOASMA
     Route: 061
     Dates: start: 201605, end: 201606
  2. VITAMIN C [Concomitant]
     Active Substance: ASCORBIC ACID
     Indication: PRODUCT USED FOR UNKNOWN INDICATION
     Route: 061
  3. UNKNOWN SUNSCREEN [Concomitant]
     Indication: PROPHYLAXIS AGAINST SOLAR RADIATION
     Route: 061
  4. TRI-LUMA [Suspect]
     Active Substance: FLUOCINOLONE ACETONIDE\HYDROQUINONE\TRETINOIN
     Indication: POST INFLAMMATORY PIGMENTATION CHANGE
     Route: 061
     Dates: start: 201608

REACTIONS (3)
  - Intentional product use issue [Recovered/Resolved]
  - Rebound effect [Recovered/Resolved]
  - Incorrect product storage [Recovered/Resolved]

NARRATIVE: CASE EVENT DATE: 2016
